FAERS Safety Report 9275826 (Version 1)
Quarter: 2013Q2

REPORT INFORMATION
  Report Type: Spontaneous
  Country: CY (occurrence: None)
  Receive Date: 20130430
  Receipt Date: 20130430
  Transmission Date: 20140414
  Serious: Yes (Hospitalization, Other)
  Sender: FDA-Public Use
  Company Number: 2013AP004561

PATIENT
  Age: 26 Year
  Sex: Male
  Weight: 68 kg

DRUGS (3)
  1. FERRIPROX [Suspect]
     Indication: THALASSAEMIA BETA
     Route: 048
     Dates: start: 19990920, end: 20080418
  2. FERRIPROX [Suspect]
     Indication: IRON OVERLOAD
     Route: 048
     Dates: start: 19990920, end: 20080418
  3. DEFEROXAMINE [Concomitant]

REACTIONS (3)
  - Neutropenia [None]
  - Pyrexia [None]
  - Pharyngitis [None]
